FAERS Safety Report 7855078-X (Version None)
Quarter: 2011Q4

REPORT INFORMATION
  Report Type: 
  Country: None (occurrence: None)
  Receive Date: 20111026
  Receipt Date: 20111020
  Transmission Date: 20120403
  Serious: Yes (Death)
  Sender: FDA-Public Use
  Company Number: JP-CELGENEUS-087-CCAZA-11100876

PATIENT
  Sex: Female

DRUGS (4)
  1. VIDAZA [Suspect]
     Dosage: 75 MILLIGRAM
     Route: 058
     Dates: start: 20110823, end: 20110829
  2. PLATELETS [Concomitant]
     Route: 065
  3. VIDAZA [Suspect]
     Dosage: 75 MILLIGRAM
     Route: 058
     Dates: start: 20110926, end: 20111002
  4. RED BLOOD CELLS [Concomitant]
     Route: 065

REACTIONS (1)
  - CEREBRAL HAEMORRHAGE [None]
